FAERS Safety Report 5715154-4 (Version None)
Quarter: 2008Q2

REPORT INFORMATION
  Report Type: 
  Country: None (occurrence: None)
  Receive Date: 20080423
  Receipt Date: 20080327
  Transmission Date: 20081010
  Serious: No
  Sender: FDA-Public Use
  Company Number: US-BOEHRINGER INGELHEIM GMBH, GERMANY-2008-BP-04881BP

PATIENT
  Sex: Female

DRUGS (8)
  1. SPIRIVA [Suspect]
     Indication: CHRONIC OBSTRUCTIVE PULMONARY DISEASE
     Dates: start: 20070101
  2. SPIRIVA [Suspect]
     Indication: ASTHMA
  3. SPIRIVA [Suspect]
     Indication: EMPHYSEMA
  4. SPIRIVA [Suspect]
     Indication: BRONCHITIS CHRONIC
  5. SPIRIVA [Suspect]
     Indication: DYSPNOEA
  6. ALBUTEROL SULFATE [Concomitant]
  7. FORADIL [Concomitant]
  8. OTHER PRESCRIPTION MEDICATION [Concomitant]

REACTIONS (1)
  - UNEVALUABLE EVENT [None]
